FAERS Safety Report 8288935-3 (Version None)
Quarter: 2012Q2

REPORT INFORMATION
  Report Type: 
  Country: None (occurrence: None)
  Receive Date: 20120417
  Receipt Date: 20120410
  Transmission Date: 20120825
  Serious: Yes (Hospitalization)
  Sender: FDA-Public Use
  Company Number: US-BAYER-2011-116620

PATIENT
  Age: 44 Year
  Sex: Female
  Weight: 77.098 kg

DRUGS (14)
  1. ONDANSETRON [Concomitant]
     Dosage: UNK
     Dates: start: 20071029
  2. IRON [Concomitant]
     Indication: ANAEMIA
     Dosage: UNK
     Route: 048
  3. OMEPRAZOLE [Concomitant]
     Indication: DYSPEPSIA
     Route: 048
  4. KETOROLAC TROMETHAMINE [Concomitant]
     Dosage: UNK
     Dates: start: 20071029
  5. METOCLOPRAMIDE [Concomitant]
     Dosage: UNK
     Dates: start: 20071029
  6. VICODIN [Concomitant]
     Route: 048
  7. YASMIN [Suspect]
     Indication: PREMENSTRUAL SYNDROME
     Dosage: UNK
     Dates: start: 20050801, end: 20060101
  8. YASMIN [Suspect]
     Indication: CONTRACEPTION
     Dosage: UNK
     Dates: start: 20060701, end: 20070301
  9. MULTI-VITAMIN [Concomitant]
     Indication: SUPPLEMENTATION THERAPY
     Dosage: UNK
     Route: 048
  10. PREVACID [Concomitant]
     Route: 048
  11. IBUPROFEN (ADVIL) [Concomitant]
     Indication: PAIN
     Dosage: UNK UNK, PRN
     Route: 048
  12. TYNELOL [Concomitant]
     Indication: PAIN
     Route: 048
  13. CALCIUM CARBONATE [Concomitant]
     Indication: SUPPLEMENTATION THERAPY
     Dosage: UNK
     Route: 048
  14. MORPHINE [Concomitant]
     Dosage: UNK
     Dates: start: 20071029

REACTIONS (6)
  - CHOLECYSTITIS [None]
  - EMOTIONAL DISTRESS [None]
  - GENERAL PHYSICAL HEALTH DETERIORATION [None]
  - ANXIETY [None]
  - PAIN [None]
  - ABDOMINAL PAIN [None]
